FAERS Safety Report 17974508 (Version 2)
Quarter: 2021Q1

REPORT INFORMATION
  Report Type: Spontaneous
  Country: US (occurrence: US)
  Receive Date: 20200702
  Receipt Date: 20210203
  Transmission Date: 20210419
  Serious: No
  Sender: FDA-Public Use
  Company Number: US-PFIZER INC-2018364185

PATIENT
  Age: 37 Year
  Sex: Female

DRUGS (4)
  1. LYRICA [Suspect]
     Active Substance: PREGABALIN
     Dosage: 150 MG, 3X/DAY (TAKE 1 TAB THREE TIMES DAILY)
  2. LYRICA [Suspect]
     Active Substance: PREGABALIN
     Indication: BIPOLAR DISORDER
     Dosage: 75 MG, 3X/DAY
  3. LYRICA [Suspect]
     Active Substance: PREGABALIN
     Dosage: 125 MG, 3X/DAY(TAKE WITH 25 MG FOR TOTAL OF 125/TAKE WITH 100 MG TAB FOR TOTAL OF 125 MG)
  4. LYRICA [Suspect]
     Active Substance: PREGABALIN
     Dosage: 175 MG, 3X/DAY (TAKE WITH 75 MG TAB FOR TOTAL OF 175 MG/TAKE WITH 100 MG TAB FOR TOTAL OF 175 MG)

REACTIONS (3)
  - Stress [Unknown]
  - Off label use [Unknown]
  - Intentional product use issue [Unknown]
